FAERS Safety Report 6807051-8 (Version None)
Quarter: 2010Q2

REPORT INFORMATION
  Report Type: 
  Country: None (occurrence: None)
  Receive Date: 20100629
  Receipt Date: 20080621
  Transmission Date: 20101027
  Serious: No
  Sender: FDA-Public Use
  Company Number: US-PFIZER INC-2008052310

PATIENT
  Sex: Female
  Weight: 70 kg

DRUGS (9)
  1. XANAX [Suspect]
     Indication: ANXIETY
  2. LYRICA [Interacting]
     Indication: NECK PAIN
     Dates: start: 20080301
  3. LYRICA [Interacting]
     Indication: MUSCULOSKELETAL PAIN
  4. ALL OTHER THERAPEUTIC PRODUCTS [Concomitant]
  5. OXYCONTIN [Concomitant]
  6. WELLBUTRIN [Concomitant]
  7. PAXIL [Concomitant]
  8. ADVAIR DISKUS 100/50 [Concomitant]
  9. FLONASE [Concomitant]

REACTIONS (5)
  - DRUG INTERACTION [None]
  - DRUG LEVEL INCREASED [None]
  - OEDEMA PERIPHERAL [None]
  - SLEEP DISORDER [None]
  - WEIGHT INCREASED [None]
